FAERS Safety Report 23671667 (Version 1)
Quarter: 2024Q1

REPORT INFORMATION
  Report Type: Spontaneous
  Country: CN (occurrence: None)
  Receive Date: 20240326
  Receipt Date: 20240326
  Transmission Date: 20240409
  Serious: Yes (Hospitalization, Other)
  Sender: FDA-Public Use
  Company Number: CN-Unichem Pharmaceuticals (USA) Inc-UCM202403-000288

PATIENT
  Age: 42 Year
  Sex: Female

DRUGS (1)
  1. METRONIDAZOLE [Suspect]
     Active Substance: METRONIDAZOLE
     Indication: Peptic ulcer
     Route: 048

REACTIONS (3)
  - Deafness bilateral [Recovered/Resolved]
  - Status epilepticus [Recovered/Resolved]
  - Toxic encephalopathy [Recovered/Resolved]
